FAERS Safety Report 13871167 (Version 1)
Quarter: 2017Q3

REPORT INFORMATION
  Report Type: Spontaneous
  Country: US (occurrence: US)
  Receive Date: 20170816
  Receipt Date: 20170816
  Transmission Date: 20171127
  Serious: No
  Sender: FDA-Public Use
  Company Number: US-009507513-1708USA006664

PATIENT
  Age: 26 Year
  Weight: 69.76 kg

DRUGS (1)
  1. NEXPLANON [Suspect]
     Active Substance: ETONOGESTREL
     Dosage: 1 IMPLANT , UNK
     Route: 030
     Dates: start: 20141105, end: 20170815

REACTIONS (8)
  - Implant site swelling [Unknown]
  - Device deployment issue [Recovered/Resolved]
  - Libido decreased [Unknown]
  - Weight increased [Unknown]
  - Complication associated with device [Recovered/Resolved]
  - Migration of implanted drug [Recovered/Resolved]
  - Inappropriate schedule of drug administration [Unknown]
  - Implant site bruising [Unknown]

NARRATIVE: CASE EVENT DATE: 20141105
